FAERS Safety Report 5498625-8 (Version None)
Quarter: 2007Q4

REPORT INFORMATION
  Report Type: 
  Country: None (occurrence: None)
  Receive Date: 20071024
  Receipt Date: 20071024
  Transmission Date: 20080405
  Serious: Yes (Other)
  Sender: FDA-Public Use
  Company Number: None

PATIENT
  Sex: Male
  Weight: 66.2252 kg

DRUGS (17)
  1. LEXAPRO [Suspect]
     Indication: DEPRESSION
     Dates: start: 20070601, end: 20071019
  2. RELPAX [Concomitant]
  3. PHENERGAN HCL [Concomitant]
  4. EXCEDRIN (MIGRAINE) [Concomitant]
  5. CALCIUM [Concomitant]
  6. MAGNESIUM SULFATE [Concomitant]
  7. AMOXICILLIN [Concomitant]
  8. NASAREL [Concomitant]
  9. HYDROCODONE [Concomitant]
  10. IBUPROFEN [Concomitant]
  11. VICODIN [Concomitant]
  12. NAPROSYN [Concomitant]
  13. ASPIRIN [Concomitant]
  14. MIDRIN [Concomitant]
  15. FISH OIL [Concomitant]
  16. TRAZODONE HCL [Concomitant]
  17. ZOLOFT [Concomitant]

REACTIONS (3)
  - CONDITION AGGRAVATED [None]
  - HEADACHE [None]
  - NO THERAPEUTIC RESPONSE [None]
